FAERS Safety Report 9962568 (Version 2)
Quarter: 2014Q1

REPORT INFORMATION
  Report Type: Report from Study
  Country: US (occurrence: US)
  Receive Date: 20140305
  Receipt Date: 20140305
  Transmission Date: 20141002
  Serious: No
  Sender: FDA-Public Use
  Company Number: US-ABBVIE-13P-163-1087916-00

PATIENT
  Age: 28 Year
  Sex: Female
  Weight: 53.57 kg

DRUGS (3)
  1. HUMIRA [Suspect]
     Indication: CROHN^S DISEASE
     Dosage: ONE TIME DOSE
     Route: 058
     Dates: start: 20130509, end: 20130509
  2. HUMIRA [Suspect]
     Route: 058
     Dates: start: 20130509
  3. NORCO [Concomitant]
     Indication: PRODUCT USED FOR UNKNOWN INDICATION
     Dosage: FOR ABDOMINAL PAIN

REACTIONS (6)
  - Feeling abnormal [Recovering/Resolving]
  - Injection site pain [Recovered/Resolved]
  - Paraesthesia oral [Recovering/Resolving]
  - Influenza like illness [Recovering/Resolving]
  - Injection site pain [Recovering/Resolving]
  - Injection site pain [Recovering/Resolving]
